FAERS Safety Report 6356639-X (Version None)
Quarter: 2009Q3

REPORT INFORMATION
  Report Type: 
  Country: None (occurrence: None)
  Receive Date: 20090915
  Receipt Date: 20090905
  Transmission Date: 20100115
  Serious: No
  Sender: FDA-Public Use
  Company Number: US-B.I. PHARMACEUTICALS,INC./RIDGEFIELD-2009-BP-10586BP

PATIENT
  Sex: Male

DRUGS (1)
  1. FLOMAX [Suspect]
     Dosage: 0.4 MG

REACTIONS (1)
  - DEPENDENCE [None]
